FAERS Safety Report 14923613 (Version 2)
Quarter: 2018Q2

REPORT INFORMATION
  Report Type: Spontaneous
  Country: JP (occurrence: JP)
  Receive Date: 20180522
  Receipt Date: 20180530
  Transmission Date: 20180711
  Serious: Yes (Hospitalization, Other)
  Sender: FDA-Public Use
  Company Number: JP-PFIZER INC-2018202979

PATIENT
  Age: 79 Year
  Sex: Male

DRUGS (1)
  1. TAXOTERE [Suspect]
     Active Substance: DOCETAXEL
     Indication: PROSTATE CANCER
     Dosage: UNK
     Dates: start: 201605

REACTIONS (2)
  - Intestinal ischaemia [Unknown]
  - Bone marrow failure [Recovering/Resolving]
